FAERS Safety Report 9046998 (Version 2)
Quarter: 2013Q3

REPORT INFORMATION
  Report Type: Report from Study
  Country: JP (occurrence: JP)
  Receive Date: 20130204
  Receipt Date: 20130816
  Transmission Date: 20140515
  Serious: Yes (Hospitalization)
  Sender: FDA-Public Use
  Company Number: JP-009507513-1301JPN012676

PATIENT
  Age: 74 Year
  Sex: Male

DRUGS (1)
  1. TAPROS [Suspect]
     Indication: NORMAL TENSION GLAUCOMA
     Dosage: 2 GTT, QD
     Route: 047
     Dates: start: 20090402, end: 20100621

REACTIONS (1)
  - Metastasis [Recovering/Resolving]
